FAERS Safety Report 8825897 (Version 1)
Quarter: 2012Q4

REPORT INFORMATION
  Report Type: 
  Country: JP (occurrence: JP)
  Receive Date: 20121005
  Receipt Date: 20121005
  Transmission Date: 20130627
  Serious: Yes (Other)
  Sender: FDA-Public Use
  Company Number: JP-ELI_LILLY_AND_COMPANY-JP201209007262

PATIENT
  Age: 0 Year
  Weight: 3 kg

DRUGS (8)
  1. ZYPREXA [Suspect]
     Indication: SCHIZOAFFECTIVE DISORDER
     Dosage: 10 mg, qd
     Route: 064
     Dates: start: 20110523, end: 20110524
  2. ZYPREXA [Suspect]
     Indication: SCHIZOAFFECTIVE DISORDER
     Dosage: 10 mg, qd
     Route: 064
     Dates: start: 20110523, end: 20110524
  3. ZYPREXA [Suspect]
     Dosage: 5 mg, qd
     Route: 064
     Dates: start: 20110525, end: 20110531
  4. ZYPREXA [Suspect]
     Dosage: 5 mg, qd
     Route: 064
     Dates: start: 20110525, end: 20110531
  5. ZYPREXA [Suspect]
     Dosage: 10 mg, qd
     Route: 064
     Dates: start: 20110601
  6. ZYPREXA [Suspect]
     Dosage: 10 mg, qd
     Route: 064
     Dates: start: 20110601
  7. DEPAKENE [Concomitant]
     Indication: SCHIZOAFFECTIVE DISORDER
     Dosage: UNK
     Route: 048
     Dates: end: 201012
  8. DEPAKENE [Concomitant]
     Indication: SCHIZOAFFECTIVE DISORDER
     Dosage: UNK
     Route: 048
     Dates: end: 201012

REACTIONS (3)
  - Apgar score low [Unknown]
  - Foetal exposure during pregnancy [Recovered/Resolved]
  - Premature baby [Unknown]
